FAERS Safety Report 8223243-8 (Version None)
Quarter: 2012Q1

REPORT INFORMATION
  Report Type: 
  Country: None (occurrence: None)
  Receive Date: 20120321
  Receipt Date: 20120313
  Transmission Date: 20120608
  Serious: Yes (Death, Hospitalization)
  Sender: FDA-Public Use
  Company Number: JP-ROCHE-1050435

PATIENT
  Age: 82 Year
  Sex: Male

DRUGS (2)
  1. LUCENTIS [Suspect]
     Indication: AGE-RELATED MACULAR DEGENERATION
     Route: 050
     Dates: start: 20111124
  2. LUCENTIS [Suspect]
     Route: 050
     Dates: start: 20120126, end: 20120126

REACTIONS (3)
  - ARTHRITIS [None]
  - PULMONARY EMBOLISM [None]
  - AORTIC DISSECTION [None]
